FAERS Safety Report 5213184-2 (Version None)
Quarter: 2007Q1

REPORT INFORMATION
  Report Type: 
  Country: None (occurrence: None)
  Receive Date: 20070119
  Receipt Date: 20070108
  Transmission Date: 20070707
  Serious: Yes (Hospitalization)
  Sender: FDA-Public Use
  Company Number: FR-GLAXOSMITHKLINE-B0451480A

PATIENT
  Sex: Male

DRUGS (6)
  1. RETROVIR [Suspect]
     Indication: ANTIVIRAL PROPHYLAXIS
     Route: 048
     Dates: start: 19980428, end: 19980605
  2. EPIVIR [Suspect]
     Indication: ANTIVIRAL PROPHYLAXIS
     Route: 048
     Dates: start: 19980428, end: 19980605
  3. RETROVIR [Concomitant]
     Dates: end: 19980428
  4. EPIVIR [Concomitant]
     Dosage: 300MG PER DAY
     Dates: end: 19980428
  5. RETROVIR [Concomitant]
     Dosage: 170MG PER DAY
     Dates: start: 19980428, end: 19980428
  6. CLAMOXYL [Concomitant]
     Dates: start: 19980420

REACTIONS (12)
  - DIPLOPIA [None]
  - DRUG EXPOSURE DURING PREGNANCY [None]
  - FATIGUE [None]
  - HYDROCEPHALUS [None]
  - NEOPLASM [None]
  - PAPILLOEDEMA [None]
  - PARESIS CRANIAL NERVE [None]
  - PINEALOBLASTOMA [None]
  - SOMNOLENCE [None]
  - STRABISMUS [None]
  - VISUAL ACUITY REDUCED [None]
  - VOMITING [None]
